FAERS Safety Report 9124251 (Version 1)
Quarter: 2013Q1

REPORT INFORMATION
  Report Type: Spontaneous
  Country: US (occurrence: US)
  Receive Date: 20130227
  Receipt Date: 20130227
  Transmission Date: 20140127
  Serious: Yes (Hospitalization, Other)
  Sender: FDA-Public Use
  Company Number: US-WATSON-2012-19983

PATIENT
  Age: 54 Year
  Sex: Female

DRUGS (3)
  1. MORPHINE SULFATE (UNKNOWN) [Suspect]
     Indication: BACK PAIN
     Dosage: PEAK DOSE 15.8 MG/DAY
     Route: 037
  2. BUPIVICAINE [Concomitant]
     Indication: PRODUCT USED FOR UNKNOWN INDICATION
     Dosage: UNK, UNKNOWN
     Route: 065
  3. CLONIDINE [Concomitant]
     Indication: PRODUCT USED FOR UNKNOWN INDICATION
     Dosage: UNK, UNKNOWN
     Route: 065

REACTIONS (4)
  - Urinary incontinence [Recovered/Resolved]
  - Muscular weakness [Recovered/Resolved]
  - Hypoaesthesia [Recovered/Resolved]
  - Injection site granuloma [Recovered/Resolved]
